FAERS Safety Report 8830369 (Version 2)
Quarter: 2012Q4

REPORT INFORMATION
  Report Type: 
  Country: US (occurrence: US)
  Receive Date: 20121009
  Receipt Date: 20121227
  Transmission Date: 20130627
  Serious: Yes (Death)
  Sender: FDA-Public Use
  Company Number: US-SHIRE-ALL1-2012-04855

PATIENT
  Sex: Male

DRUGS (1)
  1. LIALDA [Suspect]
     Indication: COLITIS ULCERATIVE
     Dosage: 2.4 g, 1x/day:qd (two 1.2 gram tablets daily)
     Route: 048

REACTIONS (1)
  - Death [Fatal]
